FAERS Safety Report 5078611-2 (Version None)
Quarter: 2006Q3

REPORT INFORMATION
  Report Type: 
  Country: None (occurrence: None)
  Receive Date: 20060811
  Receipt Date: 20060811
  Transmission Date: 20061208
  Serious: Yes (Hospitalization)
  Sender: FDA-Public Use
  Company Number: None

PATIENT
  Age: 17 Year
  Sex: Female
  Weight: 117.4816 kg

DRUGS (6)
  1. DIVALPROEX EXTENDED-RELEASE [Suspect]
     Indication: BIPOLAR DISORDER
     Dosage: 2000 MG AT BEDTIME PO
     Route: 048
     Dates: start: 20060610, end: 20060618
  2. ARIPIPRAZOLE [Concomitant]
  3. LEVOTHYROXINE SODIUM [Concomitant]
  4. AMOXICILLIN [Concomitant]
  5. LAMOTRIGINE [Concomitant]
  6. DIVALPROEX [Concomitant]

REACTIONS (6)
  - BODY TEMPERATURE INCREASED [None]
  - CHEST PAIN [None]
  - PHARYNGITIS STREPTOCOCCAL [None]
  - RASH MACULO-PAPULAR [None]
  - REFUSAL OF TREATMENT BY PATIENT [None]
  - VOMITING [None]
